FAERS Safety Report 4634716-9 (Version None)
Quarter: 2005Q2

REPORT INFORMATION
  Report Type: 
  Country: None (occurrence: None)
  Receive Date: 20050413
  Receipt Date: 20050413
  Transmission Date: 20051028
  Serious: No
  Sender: FDA-Public Use
  Company Number: None

PATIENT
  Sex: Female

DRUGS (2)
  1. DEMULEN 1/35-21 [Suspect]
     Indication: CONTRACEPTION
     Dosage: ONE DAILY
     Dates: start: 20050101, end: 20050301
  2. YASMIN [Suspect]
     Indication: CONTRACEPTION
     Dates: start: 20050301, end: 20050328

REACTIONS (3)
  - MENSTRUATION IRREGULAR [None]
  - NAUSEA [None]
  - PHARMACEUTICAL PRODUCT COMPLAINT [None]
